FAERS Safety Report 5869800-5 (Version None)
Quarter: 2008Q3

REPORT INFORMATION
  Report Type: 
  Country: None (occurrence: None)
  Receive Date: 20080828
  Receipt Date: 20080212
  Transmission Date: 20090109
  Serious: Yes (Other)
  Sender: FDA-Public Use
  Company Number: 2007-00610FE

PATIENT
  Age: 29 Year
  Sex: Female

DRUGS (3)
  1. MENOPUR [Suspect]
     Indication: INFERTILITY
     Dates: start: 20070101, end: 20070101
  2. MENOPUR [Suspect]
     Indication: INFERTILITY
     Dates: start: 20070616, end: 20070622
  3. CETRORELIX ACETATE [Concomitant]

REACTIONS (6)
  - ABORTION SPONTANEOUS [None]
  - DRUG EXPOSURE DURING PREGNANCY [None]
  - HAEMORRHAGE [None]
  - OVARIAN HYPERSTIMULATION SYNDROME [None]
  - PREGNANCY [None]
  - TREATMENT NONCOMPLIANCE [None]
